FAERS Safety Report 6837087-2 (Version None)
Quarter: 2010Q3

REPORT INFORMATION
  Report Type: 
  Country: None (occurrence: None)
  Receive Date: 20100713
  Receipt Date: 20070503
  Transmission Date: 20110219
  Serious: No
  Sender: FDA-Public Use
  Company Number: US-PFIZER INC-2007037133

PATIENT
  Sex: Female
  Weight: 61.4 kg

DRUGS (2)
  1. CHANTIX [Suspect]
     Indication: SMOKING CESSATION THERAPY
     Dates: start: 20070501
  2. LORTAB [Concomitant]
     Indication: INTERVERTEBRAL DISC PROTRUSION

REACTIONS (4)
  - ABDOMINAL PAIN UPPER [None]
  - FLUSHING [None]
  - INSOMNIA [None]
  - NAUSEA [None]
